FAERS Safety Report 11703766 (Version 3)
Quarter: 2017Q3

REPORT INFORMATION
  Report Type: Spontaneous
  Country: US (occurrence: US)
  Receive Date: 20151106
  Receipt Date: 20170928
  Transmission Date: 20171127
  Serious: Yes (Other)
  Sender: FDA-Public Use
  Company Number: PHEH2015US022511

PATIENT
  Age: 59 Year
  Sex: Female

DRUGS (1)
  1. TYKERB [Suspect]
     Active Substance: LAPATINIB DITOSYLATE
     Indication: BREAST CANCER
     Dosage: 750 MG, QD
     Route: 048
     Dates: start: 2010

REACTIONS (9)
  - Transient ischaemic attack [Unknown]
  - Dysarthria [Unknown]
  - Rash [Unknown]
  - Hypoaesthesia [Unknown]
  - Migraine with aura [Unknown]
  - Epistaxis [Unknown]
  - Visual impairment [Unknown]
  - Diarrhoea [Unknown]
  - Swelling [Unknown]

NARRATIVE: CASE EVENT DATE: 20151102
